FAERS Safety Report 4916442-1 (Version None)
Quarter: 2006Q1

REPORT INFORMATION
  Report Type: 
  Country: None (occurrence: None)
  Receive Date: 20060214
  Receipt Date: 20060203
  Transmission Date: 20060701
  Serious: Yes (Death)
  Sender: FDA-Public Use
  Company Number: 200610454GDS

PATIENT
  Age: 90 Year
  Sex: Female

DRUGS (1)
  1. CIPRO [Suspect]
     Dosage: 1000 MG, TOTAL DAILY, ORAL
     Route: 048

REACTIONS (3)
  - ELECTROLYTE IMBALANCE [None]
  - HALLUCINATION, AUDITORY [None]
  - HALLUCINATION, VISUAL [None]
